FAERS Safety Report 15726655 (Version 1)
Quarter: 2018Q4

REPORT INFORMATION
  Report Type: Spontaneous
  Country: US (occurrence: US)
  Receive Date: 20181217
  Receipt Date: 20181217
  Transmission Date: 20190205
  Serious: No
  Sender: FDA-Public Use
  Company Number: US-NOVOPROD-597467

PATIENT
  Age: 74 Year
  Sex: Female

DRUGS (3)
  1. LEVEMIR [Suspect]
     Active Substance: INSULIN DETEMIR
     Indication: TYPE 2 DIABETES MELLITUS
     Dosage: 50 U, QD AT NIGHT
     Route: 058
  2. NOVOLOG [Concomitant]
     Active Substance: INSULIN ASPART
     Indication: TYPE 2 DIABETES MELLITUS
     Dosage: 20 UNITS WITH MEALS
     Route: 065
  3. LEVEMIR [Suspect]
     Active Substance: INSULIN DETEMIR
     Dosage: 50 U, QD AT NIGHT
     Route: 058

REACTIONS (8)
  - Blood glucose decreased [Unknown]
  - Blood glucose increased [Unknown]
  - Device malfunction [Not Recovered/Not Resolved]
  - Blood glucose increased [Recovering/Resolving]
  - Eye swelling [Not Recovered/Not Resolved]
  - Wrong technique in product usage process [Unknown]
  - Underdose [Not Recovered/Not Resolved]
  - Blood glucose increased [Unknown]

NARRATIVE: CASE EVENT DATE: 2017
